FAERS Safety Report 6583160-6 (Version None)
Quarter: 2010Q1

REPORT INFORMATION
  Report Type: 
  Country: None (occurrence: None)
  Receive Date: 20100204
  Receipt Date: 20100120
  Transmission Date: 20100710
  Serious: Yes (Life-Threatening, Hospitalization, Disabling)
  Sender: FDA-Public Use
  Company Number: 2010000055

PATIENT
  Age: 73 Year
  Sex: Female

DRUGS (10)
  1. ERLOTINIB HYDROCHLORIDE [Suspect]
     Indication: NON-SMALL CELL LUNG CANCER
     Dosage: (150 MG,QD), ORAL
     Route: 048
     Dates: start: 20091024, end: 20091214
  2. TAXOTERE [Suspect]
     Indication: NON-SMALL CELL LUNG CANCER
     Dosage: (145 MG,Q3W), INTRAVENOUS
     Route: 042
     Dates: start: 20091021
  3. ULTRA LEVURE [Suspect]
  4. SINTROM [Concomitant]
  5. EZETIMIBE/SIMVASTATIN [Concomitant]
  6. ANGORON (AMIODARONE HYDROCHLORIDE) [Concomitant]
  7. LEVOTHYROXINE SODIUM [Concomitant]
  8. ENALAPRIL MALEATE [Concomitant]
  9. MEDROL [Concomitant]
  10. FENTANYL [Concomitant]

REACTIONS (9)
  - DIALYSIS [None]
  - DIARRHOEA [None]
  - FATIGUE [None]
  - HAEMOGLOBIN DECREASED [None]
  - PYREXIA [None]
  - RENAL FAILURE ACUTE [None]
  - SEPTIC SHOCK [None]
  - VOMITING [None]
  - WHITE BLOOD CELL COUNT INCREASED [None]
